FAERS Safety Report 14856027 (Version 3)
Quarter: 2018Q3

REPORT INFORMATION
  Report Type: Spontaneous
  Country: US (occurrence: US)
  Receive Date: 20180507
  Receipt Date: 20180726
  Transmission Date: 20181010
  Serious: No
  Sender: FDA-Public Use
  Company Number: US-ACTELION-A-US2018-171003

PATIENT
  Age: 82 Year
  Sex: Female

DRUGS (1)
  1. VALCHLOR [Suspect]
     Active Substance: MECHLORETHAMINE
     Indication: MYCOSIS FUNGOIDES
     Dosage: UNK
     Route: 061
     Dates: start: 20121221

REACTIONS (5)
  - Nasopharyngitis [Unknown]
  - Product quality issue [Unknown]
  - Macule [Unknown]
  - Pruritus [Unknown]
  - Disease progression [Unknown]
